FAERS Safety Report 20234004 (Version 2)
Quarter: 2022Q1

REPORT INFORMATION
  Report Type: Report from Study
  Country: CA (occurrence: CA)
  Receive Date: 20211227
  Receipt Date: 20220201
  Transmission Date: 20220423
  Serious: Yes (Hospitalization)
  Sender: FDA-Public Use
  Company Number: CA-BIOGEN-2021BI01076623

PATIENT
  Sex: Female

DRUGS (16)
  1. DALFAMPRIDINE [Suspect]
     Active Substance: DALFAMPRIDINE
     Indication: Multiple sclerosis
     Route: 048
     Dates: start: 20160429
  2. DALFAMPRIDINE [Suspect]
     Active Substance: DALFAMPRIDINE
     Route: 048
     Dates: start: 20160429, end: 20211210
  3. TIZANIDINE [Suspect]
     Active Substance: TIZANIDINE
     Indication: Muscle spasticity
     Route: 065
  4. TYSABRI [Suspect]
     Active Substance: NATALIZUMAB
     Indication: Multiple sclerosis
     Route: 042
     Dates: start: 20211217
  5. SOLU-MEDROL [Concomitant]
     Active Substance: METHYLPREDNISOLONE SODIUM SUCCINATE
     Indication: Product used for unknown indication
     Route: 042
  6. MODAFINIL [Concomitant]
     Active Substance: MODAFINIL
     Indication: Product used for unknown indication
     Route: 065
  7. ESTRADIOL\PROGESTERONE [Concomitant]
     Active Substance: ESTRADIOL\PROGESTERONE
     Indication: Product used for unknown indication
     Route: 065
  8. PANTOPRAZOLE MAGNESIUM [Concomitant]
     Active Substance: PANTOPRAZOLE MAGNESIUM
     Indication: Product used for unknown indication
     Route: 065
  9. ATIVAN [Concomitant]
     Active Substance: LORAZEPAM
     Indication: Product used for unknown indication
     Route: 065
  10. EFFEXOR [Concomitant]
     Active Substance: VENLAFAXINE HYDROCHLORIDE
     Indication: Product used for unknown indication
     Route: 065
  11. MAGNESIUM [Concomitant]
     Active Substance: MAGNESIUM
     Indication: Product used for unknown indication
     Route: 065
  12. VITAMIN D NOS [Concomitant]
     Active Substance: VITAMIN D NOS
     Indication: Product used for unknown indication
     Route: 065
  13. VITAMIN B-COMPLEX [Concomitant]
     Active Substance: DEXPANTHENOL\NIACINAMIDE\PYRIDOXINE HYDROCHLORIDE\RIBOFLAVIN 5^-PHOSPHATE SODIUM\THIAMINE HYDROCHLOR
     Indication: Product used for unknown indication
     Route: 065
  14. Cortyceps [Concomitant]
     Indication: Product used for unknown indication
     Route: 065
  15. 5HTP [Concomitant]
     Indication: Product used for unknown indication
     Route: 065
  16. MELATONIN [Concomitant]
     Active Substance: MELATONIN
     Indication: Product used for unknown indication
     Route: 065

REACTIONS (4)
  - Hypotension [Unknown]
  - Pallor [Unknown]
  - Multiple sclerosis relapse [Unknown]
  - Loss of therapeutic response [Not Recovered/Not Resolved]
